FAERS Safety Report 5135021-7 (Version None)
Quarter: 2006Q4

REPORT INFORMATION
  Report Type: 
  Country: None (occurrence: None)
  Receive Date: 20061025
  Receipt Date: 20061019
  Transmission Date: 20070319
  Serious: Yes (Hospitalization)
  Sender: FDA-Public Use
  Company Number: US-MERCK-0610USA11843

PATIENT
  Sex: Male

DRUGS (4)
  1. PRIMAXIN [Suspect]
     Route: 042
  2. ZOSYN [Concomitant]
     Route: 065
  3. VANCOCIN INJECTION [Concomitant]
     Route: 065
  4. VANCOMYCIN [Concomitant]
     Route: 065

REACTIONS (1)
  - CLOSTRIDIUM DIFFICILE COLITIS [None]
